FAERS Safety Report 18866594 (Version 1)
Quarter: 2021Q1

REPORT INFORMATION
  Report Type: Spontaneous
  Country: US (occurrence: US)
  Receive Date: 20210208
  Receipt Date: 20210208
  Transmission Date: 20210420
  Serious: No
  Sender: FDA-Public Use
  Company Number: NVSC2021US026231

PATIENT
  Sex: Female

DRUGS (1)
  1. DUREZOL [Suspect]
     Active Substance: DIFLUPREDNATE
     Indication: PRODUCT USED FOR UNKNOWN INDICATION
     Dosage: 0.05 UNK, BID
     Route: 065
     Dates: start: 20210203

REACTIONS (4)
  - Eye disorder [Unknown]
  - Discomfort [Unknown]
  - Ocular hyperaemia [Unknown]
  - Eye irritation [Unknown]
